FAERS Safety Report 9784626 (Version 2)
Quarter: 2014Q1

REPORT INFORMATION
  Report Type: Spontaneous
  Country: IT (occurrence: IT)
  Receive Date: 20131226
  Receipt Date: 20140103
  Transmission Date: 20141002
  Serious: Yes (Hospitalization)
  Sender: FDA-Public Use
  Company Number: IT-WATSON-2013-23355

PATIENT
  Age: 5 Year
  Sex: Female

DRUGS (1)
  1. CITALOPRAM (UNKNOWN) [Suspect]
     Indication: PRODUCT USED FOR UNKNOWN INDICATION
     Dosage: 10 DROPS/TOTAL
     Route: 048
     Dates: start: 20130204, end: 20130204

REACTIONS (2)
  - Agitation [Recovered/Resolved]
  - Drug administration error [Recovered/Resolved]
